FAERS Safety Report 7537469-X (Version None)
Quarter: 2011Q2

REPORT INFORMATION
  Report Type: 
  Country: None (occurrence: None)
  Receive Date: 20110609
  Receipt Date: 20110601
  Transmission Date: 20111010
  Serious: Yes (Hospitalization)
  Sender: FDA-Public Use
  Company Number: PHHO2011FR09412

PATIENT
  Sex: Male
  Weight: 58 kg

DRUGS (4)
  1. MYCOPHENOLIC ACID [Suspect]
     Indication: RENAL TRANSPLANT
     Dosage: 360 MG, QID
     Route: 048
     Dates: start: 20110405, end: 20110524
  2. BACTRIM [Concomitant]
     Indication: ANTIFUNGAL PROPHYLAXIS
     Dosage: 400 MG, DAILY
     Route: 048
     Dates: start: 20110406, end: 20110524
  3. NEORAL [Suspect]
     Indication: RENAL TRANSPLANT
     Dosage: 150 MG, BID
     Route: 048
     Dates: start: 20110406
  4. LERCANIDIPINE [Concomitant]
     Indication: HYPERTENSION
     Dosage: 20 MG, DAILY
     Route: 048
     Dates: start: 20110420, end: 20110524

REACTIONS (1)
  - CYTOLYTIC HEPATITIS [None]
